FAERS Safety Report 9877167 (Version 1)
Quarter: 2014Q1

REPORT INFORMATION
  Report Type: Spontaneous
  Country: KR (occurrence: KR)
  Receive Date: 20140206
  Receipt Date: 20140206
  Transmission Date: 20141002
  Serious: No
  Sender: FDA-Public Use
  Company Number: KR-JNJFOC-20140115547

PATIENT
  Sex: 0

DRUGS (1)
  1. DUROGESIC D-TRANS [Suspect]
     Indication: PAIN
     Route: 062

REACTIONS (3)
  - Insomnia [Recovered/Resolved]
  - Pruritus [Unknown]
  - Wrong technique in drug usage process [Unknown]
